FAERS Safety Report 4938638-5 (Version None)
Quarter: 2006Q1

REPORT INFORMATION
  Report Type: 
  Country: None (occurrence: None)
  Receive Date: 20060113
  Receipt Date: 20050418
  Transmission Date: 20060701
  Serious: Yes (Other)
  Sender: FDA-Public Use
  Company Number: HQWYE227303NOV04

PATIENT
  Age: 63 Year
  Sex: Female
  Weight: 79.9 kg

DRUGS (4)
  1. PREMPRO [Suspect]
     Indication: MENOPAUSE
  2. PREMARIN [Suspect]
  3. PROVERA [Suspect]
  4. VIOXX [Concomitant]

REACTIONS (1)
  - BREAST CANCER [None]
